FAERS Safety Report 17991104 (Version 1)
Quarter: 2020Q3

REPORT INFORMATION
  Report Type: Spontaneous
  Country: US (occurrence: US)
  Receive Date: 20200707
  Receipt Date: 20200707
  Transmission Date: 20201103
  Serious: Yes (Hospitalization)
  Sender: FDA-Public Use
  Company Number: US-TEVA-2020-US-1796924

PATIENT
  Age: 20 Year
  Sex: Male

DRUGS (1)
  1. CLONAZEPAM. [Suspect]
     Active Substance: CLONAZEPAM
     Dosage: HE WAS PRESCRIBED ONE TABLET AT A TIME, BUT INSTEAD TOOK TWO TABLETS AN HOUR BEFORE THE CRASH
     Route: 065

REACTIONS (4)
  - Intentional product misuse [Unknown]
  - Impaired driving ability [Unknown]
  - Coordination abnormal [Unknown]
  - Road traffic accident [Unknown]
